FAERS Safety Report 9417073 (Version 3)
Quarter: 2013Q3

REPORT INFORMATION
  Report Type: Spontaneous
  Country: JP (occurrence: JP)
  Receive Date: 20130724
  Receipt Date: 20130816
  Transmission Date: 20140515
  Serious: Yes (Hospitalization)
  Sender: FDA-Public Use
  Company Number: JP-PFIZER INC-2013210744

PATIENT
  Age: 78 Year
  Sex: Male
  Weight: 34 kg

DRUGS (18)
  1. VFEND [Suspect]
     Indication: ASPERGILLOMA
     Dosage: 100 MG, 2X/DAY
     Route: 048
     Dates: start: 20130215, end: 20130715
  2. PREGABALIN [Suspect]
     Indication: SPINAL COLUMN STENOSIS
     Dosage: 150 MG, 2X/DAY
     Route: 048
     Dates: start: 20130329, end: 20130715
  3. NORVASC [Concomitant]
     Indication: HYPERTENSION
     Dosage: 2.5 MG, 1X/DAY
     Route: 048
     Dates: start: 20130205
  4. RENIVACE [Concomitant]
     Indication: HYPERTENSION
     Dosage: 5 MG, 1X/DAY
     Route: 048
     Dates: start: 20130224
  5. BAYASPIRIN [Concomitant]
     Indication: PERIPHERAL ARTERIAL OCCLUSIVE DISEASE
     Dosage: 100 MG, 1X/DAY
     Route: 048
  6. ASPARA [Concomitant]
  7. ITOROL [Concomitant]
     Indication: ANGINA PECTORIS
     Dosage: 20 MG, 2X/DAY
     Route: 048
  8. TAKEPRON OD [Concomitant]
     Indication: GASTROOESOPHAGEAL REFLUX DISEASE
     Dosage: 15 MG, 1X/DAY
     Route: 048
     Dates: start: 20130126
  9. HYPEN [Concomitant]
     Indication: SPINAL COLUMN STENOSIS
     Dosage: 200 MG, 2X/DAY
     Route: 048
     Dates: start: 20130203
  10. THYRADIN [Concomitant]
     Indication: HYPOTHYROIDISM
     Dosage: 75 UG, 1X/DAY
     Route: 048
     Dates: start: 20130130
  11. LENDORMIN [Concomitant]
     Indication: INSOMNIA
     Dosage: 0.25 MG, 1X/DAY
     Route: 048
     Dates: start: 20130327
  12. MAGMITT [Concomitant]
  13. LAXOBERON [Concomitant]
  14. SULPERAZON [Concomitant]
     Indication: PNEUMONIA
     Dosage: 1 G, 2X/DAY
     Route: 041
     Dates: start: 20130430, end: 20130513
  15. SULPERAZON [Concomitant]
     Dosage: 1 G, 2X/DAY
     Route: 041
     Dates: start: 20130613, end: 20130626
  16. DALACIN [Concomitant]
     Indication: PNEUMONIA
     Dosage: 600 MG, 2X/DAY
     Route: 041
     Dates: start: 20130430, end: 20130513
  17. DALACIN [Concomitant]
     Dosage: 600 MG, 2X/DAY
     Route: 041
     Dates: start: 20130613, end: 20130626
  18. ZOSYN [Concomitant]
     Indication: PNEUMONIA
     Dosage: 4.5 G, 3X/DAY
     Route: 041
     Dates: start: 20130528, end: 20130610

REACTIONS (2)
  - Depressed level of consciousness [Recovered/Resolved]
  - Depressed level of consciousness [Recovered/Resolved]
